FAERS Safety Report 4798128-X (Version None)
Quarter: 2005Q4

REPORT INFORMATION
  Report Type: 
  Country: None (occurrence: None)
  Receive Date: 20051014
  Receipt Date: 20050914
  Transmission Date: 20060501
  Serious: Yes (Hospitalization)
  Sender: FDA-Public Use
  Company Number: US-BOEHRINGER INGELHEIM PHARMACEUTICALS, INC.-2005-BP-16228BP

PATIENT
  Age: 71 Year
  Sex: Female
  Weight: 77.11 kg

DRUGS (6)
  1. CATAPRES [Suspect]
     Indication: HYPERTENSION
     Route: 048
     Dates: end: 20050918
  2. TOPROL-XL [Concomitant]
  3. ENALAPRIL [Concomitant]
     Route: 048
     Dates: start: 20050913
  4. AMIODARONE [Concomitant]
     Route: 048
  5. ENOXAPARIN SODIUM [Concomitant]
     Route: 058
     Dates: start: 20050909
  6. LINEZOLID [Concomitant]
     Route: 042
     Dates: start: 20050906

REACTIONS (2)
  - IMPAIRED HEALING [None]
  - INFECTED SKIN ULCER [None]
